FAERS Safety Report 5248606-4 (Version None)
Quarter: 2007Q1

REPORT INFORMATION
  Report Type: 
  Country: None (occurrence: None)
  Receive Date: 20070223
  Receipt Date: 20070209
  Transmission Date: 20070707
  Serious: Yes (Hospitalization)
  Sender: FDA-Public Use
  Company Number: 2007BI002912

PATIENT
  Age: 32 Year
  Sex: Female

DRUGS (2)
  1. NATALIZUMAB (NATALIZUMAB) [Suspect]
     Indication: MULTIPLE SCLEROSIS
     Dosage: 300 MG; QM;IV
     Route: 042
     Dates: start: 20061229, end: 20061229
  2. MEDROL [Concomitant]

REACTIONS (2)
  - ANAPLASTIC ASTROCYTOMA [None]
  - GENERAL PHYSICAL HEALTH DETERIORATION [None]
